FAERS Safety Report 9103319 (Version 2)
Quarter: 2014Q1

REPORT INFORMATION
  Report Type: Report from Study
  Country: IL (occurrence: IL)
  Receive Date: 20130219
  Receipt Date: 20140203
  Transmission Date: 20141002
  Serious: Yes (Other)
  Sender: FDA-Public Use
  Company Number: IL-BAYER-2013-021188

PATIENT
  Age: 37 Year
  Sex: Female

DRUGS (2)
  1. BETAFERON [Suspect]
     Indication: MULTIPLE SCLEROSIS
     Dosage: UNK
     Dates: start: 20120510, end: 20121105
  2. BETAFERON [Suspect]
     Indication: MULTIPLE SCLEROSIS
     Dosage: UNK
     Dates: start: 20121119

REACTIONS (7)
  - Hypothyroidism [None]
  - Injection site mass [None]
  - Injection site discolouration [None]
  - Abdominal abscess [None]
  - Arthralgia [None]
  - Abdominal pain [Not Recovered/Not Resolved]
  - Abdominal mass [Not Recovered/Not Resolved]
